FAERS Safety Report 9238000 (Version 1)
Quarter: 2013Q1

REPORT INFORMATION
  Report Type: Spontaneous
  Country: US (occurrence: None)
  Receive Date: 20121106
  Receipt Date: 20121106
  Transmission Date: 20140127
  Serious: Yes (Other)
  Sender: FDA-Public Use
  Company Number: 1000037858

PATIENT
  Age: 88 Year
  Sex: Male

DRUGS (14)
  1. DALIRESP [Suspect]
     Indication: CHRONIC OBSTRUCTIVE PULMONARY DISEASE
     Dates: start: 20120712, end: 2012
  2. ADVAIR (SERETIDE) [Concomitant]
  3. DUONEB (COMBIVENT) [Concomitant]
  4. METOPROLOL (METOPROLOL) [Concomitant]
  5. MUCINEX (GUAIFENESIN) [Concomitant]
  6. LASIX (FUROSEMIDE) [Concomitant]
  7. MICARDIS (TELMISARTAN) [Concomitant]
  8. OMEPRAZOLE (OMEPRAZOLE) [Concomitant]
  9. PREDNISONE (PREDNISONE) [Concomitant]
  10. RECLAST (ZOLEDRONIC ACID) [Concomitant]
  11. BACTRIM (BACTRIM) [Concomitant]
  12. ZOCOR (SIMVASTATIN) [Concomitant]
  13. SPIRIVA (TITROPIUM BROMIDE) [Concomitant]
  14. NASONEX (MOMETASONE FUROATE) [Concomitant]

REACTIONS (1)
  - Suicidal ideation [None]
